FAERS Safety Report 18577997 (Version 1)
Quarter: 2020Q4

REPORT INFORMATION
  Report Type: Spontaneous
  Country: US (occurrence: US)
  Receive Date: 20201204
  Receipt Date: 20201204
  Transmission Date: 20210114
  Serious: No
  Sender: FDA-Public Use
  Company Number: US-AMGEN INC.-USASP2020195069

PATIENT
  Sex: Female

DRUGS (2)
  1. AIMOVIG [Suspect]
     Active Substance: ERENUMAB-AOOE
     Indication: MIGRAINE PROPHYLAXIS
     Dosage: 70 MILLIGRAM, QMO  (EVERY 28 DAYS)
     Route: 065
     Dates: start: 201808
  2. OXYCODONE [Concomitant]
     Active Substance: OXYCODONE
     Dosage: 5 MILLIGRAM, TID

REACTIONS (3)
  - Back pain [Recovered/Resolved]
  - Therapy partial responder [Unknown]
  - Therapeutic response unexpected [Unknown]
